FAERS Safety Report 13036120 (Version 1)
Quarter: 2016Q4

REPORT INFORMATION
  Report Type: Spontaneous
  Country: EC (occurrence: EC)
  Receive Date: 20161216
  Receipt Date: 20161216
  Transmission Date: 20170207
  Serious: Yes (Hospitalization, Other)
  Sender: FDA-Public Use
  Company Number: EC-JNJFOC-20161214087

PATIENT
  Age: 44 Year
  Sex: Female

DRUGS (7)
  1. REMICADE [Suspect]
     Active Substance: INFLIXIMAB
     Indication: RHEUMATOID ARTHRITIS
     Route: 042
     Dates: start: 20161025
  2. METHOTREXATE. [Concomitant]
     Active Substance: METHOTREXATE
     Dosage: TREATED TWICE A WEEK
     Route: 065
     Dates: start: 20161005
  3. REMICADE [Suspect]
     Active Substance: INFLIXIMAB
     Indication: RHEUMATOID ARTHRITIS
     Route: 042
  4. METHOTREXATE. [Concomitant]
     Active Substance: METHOTREXATE
     Dosage: TREATED TWICE A WEEK, 2 YEARS AGO
     Route: 065
  5. HIDROCORTIF [Concomitant]
     Indication: PREMEDICATION
     Route: 042
     Dates: start: 201511
  6. CLEMASTINE [Concomitant]
     Active Substance: CLEMASTINE
     Route: 042
     Dates: start: 201505
  7. OXYGEN. [Concomitant]
     Active Substance: OXYGEN
     Route: 065

REACTIONS (9)
  - Swelling face [Recovering/Resolving]
  - Bronchospasm [Recovering/Resolving]
  - Dyspnoea [Recovering/Resolving]
  - Choking sensation [Recovering/Resolving]
  - Cough [Recovering/Resolving]
  - Angioedema [Recovering/Resolving]
  - Infusion related reaction [Recovering/Resolving]
  - Tachycardia [Recovering/Resolving]
  - Nausea [Recovering/Resolving]

NARRATIVE: CASE EVENT DATE: 20161025
